FAERS Safety Report 9815422 (Version 3)
Quarter: 2016Q3

REPORT INFORMATION
  Report Type: Report from Study
  Country: US (occurrence: US)
  Receive Date: 20140114
  Receipt Date: 20160802
  Transmission Date: 20161109
  Serious: Yes (Death, Hospitalization, Other)
  Sender: FDA-Public Use
  Company Number: US-ROCHE-772119

PATIENT
  Age: 17 Year
  Sex: Male

DRUGS (6)
  1. VISMODEGIB [Suspect]
     Active Substance: VISMODEGIB
     Indication: MEDULLOBLASTOMA
     Dosage: 85 MG/M2, QD, 2600 MG
     Route: 048
  2. VISMODEGIB [Suspect]
     Active Substance: VISMODEGIB
     Route: 048
  3. VISMODEGIB [Suspect]
     Active Substance: VISMODEGIB
     Route: 048
  4. VISMODEGIB [Suspect]
     Active Substance: VISMODEGIB
     Route: 048
  5. VISMODEGIB [Suspect]
     Active Substance: VISMODEGIB
     Route: 048
     Dates: start: 20091202, end: 20091224
  6. VALPROIC ACID. [Concomitant]
     Active Substance: VALPROIC ACID
     Indication: SEIZURE

REACTIONS (9)
  - Death [Fatal]
  - Anaemia [Unknown]
  - Vomiting [Unknown]
  - Dizziness [Unknown]
  - Aphasia [Unknown]
  - Dehydration [Unknown]
  - Muscular weakness [Unknown]
  - Fatigue [Unknown]
  - Seizure [Recovered/Resolved]

NARRATIVE: CASE EVENT DATE: 20090719
